FAERS Safety Report 14813202 (Version 1)
Quarter: 2018Q2

REPORT INFORMATION
  Report Type: Spontaneous
  Country: DE (occurrence: DE)
  Receive Date: 20180426
  Receipt Date: 20180426
  Transmission Date: 20180711
  Serious: Yes (Congenital Anomaly)
  Sender: FDA-Public Use
  Company Number: DE-TEVA-2018-DE-886130

PATIENT
  Age: 1 Day
  Sex: Male
  Weight: 3.33 kg

DRUGS (1)
  1. PAROXETINE. [Suspect]
     Active Substance: PAROXETINE
     Indication: DEPRESSION
     Dosage: 30 [MG/D ]/ DOSAGE REDUCTION TO 5MG/D AT THE END OF PREGNANCY
     Route: 064
     Dates: start: 20161222, end: 20170922

REACTIONS (2)
  - Foetal exposure during pregnancy [Unknown]
  - Kidney duplex [Not Recovered/Not Resolved]

NARRATIVE: CASE EVENT DATE: 20170922
